FAERS Safety Report 6704539-5 (Version None)
Quarter: 2010Q2

REPORT INFORMATION
  Report Type: 
  Country: None (occurrence: None)
  Receive Date: 20100430
  Receipt Date: 20100421
  Transmission Date: 20101027
  Serious: Yes (Hospitalization, Other)
  Sender: FDA-Public Use
  Company Number: PHHY2010FR25041

PATIENT
  Sex: Male

DRUGS (3)
  1. VOLTAREN [Suspect]
     Indication: MUSCULOSKELETAL PAIN
     Dosage: 100 MG, UNK
     Route: 048
     Dates: end: 20090921
  2. LEVOTHYROX [Concomitant]
     Dosage: 100 UG, UNK
  3. DILTIAZEM HCL [Concomitant]
     Dosage: 120 MG, UNK

REACTIONS (6)
  - ABDOMINAL PAIN UPPER [None]
  - HYPERCALCAEMIA [None]
  - HYPERPARATHYROIDISM [None]
  - LIPASE INCREASED [None]
  - PANCREATITIS ACUTE [None]
  - PYREXIA [None]
